FAERS Safety Report 6107171-X (Version None)
Quarter: 2009Q1

REPORT INFORMATION
  Report Type: 
  Country: None (occurrence: None)
  Receive Date: 20090309
  Receipt Date: 20090224
  Transmission Date: 20090719
  Serious: Yes (Other)
  Sender: FDA-Public Use
  Company Number: FR-JNJFOC-20090206073

PATIENT
  Age: 43 Year
  Sex: Female

DRUGS (4)
  1. INFLIXIMAB [Suspect]
     Indication: CUTANEOUS SARCOIDOSIS
     Dosage: THREE INFUSIONS
     Route: 042
  2. ORAL STEROIDS [Suspect]
     Indication: CUTANEOUS SARCOIDOSIS
  3. METHOTREXATE [Suspect]
     Indication: CUTANEOUS SARCOIDOSIS
  4. CYCLOSPORINE [Suspect]
     Indication: CUTANEOUS SARCOIDOSIS

REACTIONS (2)
  - DRUG INEFFECTIVE [None]
  - MYCOBACTERIUM AVIUM COMPLEX INFECTION [None]
